FAERS Safety Report 8634454 (Version 3)
Quarter: 2013Q2

REPORT INFORMATION
  Report Type: Spontaneous
  Country: US (occurrence: US)
  Receive Date: 20120626
  Receipt Date: 20130402
  Transmission Date: 20140414
  Serious: Yes (Hospitalization)
  Sender: FDA-Public Use
  Company Number: US-BAYER-2012-061029

PATIENT
  Age: 39 Year
  Sex: Female
  Weight: 78.01 kg

DRUGS (16)
  1. YASMIN [Suspect]
     Indication: ACNE
     Dosage: UNK
     Dates: start: 2010, end: 2010
  2. CEFAZOLIN [Concomitant]
     Dosage: UNK
     Dates: start: 20101117
  3. MORPHINE [Concomitant]
     Dosage: UNK
     Dates: start: 20101117
  4. TORADOL [Concomitant]
     Dosage: UNK
     Dates: start: 20101117
  5. PERCOCET [Concomitant]
     Indication: PAIN
     Dosage: 325 MG./5 MG. 1 TABLET BY MOUTH EVERY 6 HOURS AS NEEDED
     Dates: start: 20101117
  6. MOTRIN [Concomitant]
     Indication: PAIN
     Dosage: 600 MG. 1 TABLET BY MOUTH EVERY 6 HOURS AS NEEDED
     Dates: start: 20101117
  7. COLACE [Concomitant]
     Indication: CONSTIPATION
     Dosage: 100 MG. 1 TABLET BY MOUTH TWICE DAILY
     Dates: start: 20101117
  8. IBUPROFEN [Concomitant]
     Dosage: 800MG EVERY 6 HOURS PRN
     Route: 048
     Dates: start: 20101117
  9. METRONIDAZOLE [Concomitant]
     Dosage: 500 MG, BID
     Route: 048
     Dates: start: 20101126
  10. CLINDAMYCIN [Concomitant]
     Dosage: 300 MG, QID
     Route: 048
  11. FERROUS SULFATE [Concomitant]
     Dosage: UNK UNK, TID
  12. ORTHOCYCLEN [Concomitant]
  13. ENOXAPARIN [Concomitant]
  14. ACETAMINOPHEN [Concomitant]
  15. TRAMADOL [Concomitant]
  16. LUPRON [Concomitant]
     Dosage: 3.75 MG, UNK

REACTIONS (4)
  - Injury [None]
  - Pulmonary embolism [None]
  - Pain [None]
  - Pain [None]
